FAERS Safety Report 19358411 (Version 1)
Quarter: 2021Q2

REPORT INFORMATION
  Report Type: Report from Study
  Country: US (occurrence: US)
  Receive Date: 20210602
  Receipt Date: 20210602
  Transmission Date: 20210717
  Serious: Yes (Other)
  Sender: FDA-Public Use
  Company Number: US-NOVOPROD-816500

PATIENT
  Age: 70 Year
  Sex: Male

DRUGS (2)
  1. NORDITROPIN [Suspect]
     Active Substance: SOMATROPIN
     Dosage: DOSE DECREASED
     Route: 058
  2. NORDITROPIN [Suspect]
     Active Substance: SOMATROPIN
     Indication: PRODUCT USED FOR UNKNOWN INDICATION
     Dosage: 4 MG, QD
     Route: 058
     Dates: start: 2007

REACTIONS (4)
  - Lymphoma [Unknown]
  - Carpal tunnel syndrome [Recovered/Resolved]
  - Rectal cancer [Unknown]
  - Surgery [Unknown]
